FAERS Safety Report 17451698 (Version 1)
Quarter: 2020Q1

REPORT INFORMATION
  Report Type: Spontaneous
  Country: US (occurrence: US)
  Receive Date: 20200224
  Receipt Date: 20200224
  Transmission Date: 20200409
  Serious: No
  Sender: FDA-Public Use
  Company Number: None

PATIENT
  Age: 57 Year
  Sex: Male
  Weight: 121.5 kg

DRUGS (1)
  1. BUPRENORPHINE TRANSDERMAL SYSTEM 10MCG/HOUR [Suspect]
     Active Substance: BUPRENORPHINE
     Indication: PAIN
     Dosage: ?          OTHER STRENGTH:MCG/PER HOUR;QUANTITY:4 PATCH(ES);OTHER FREQUENCY:EVER 7 DAYS;?
     Route: 061
     Dates: start: 20200104

REACTIONS (5)
  - Pain [None]
  - Product substitution issue [None]
  - Product quality issue [None]
  - Device adhesion issue [None]
  - Insurance issue [None]

NARRATIVE: CASE EVENT DATE: 20200104
